FAERS Safety Report 25344375 (Version 1)
Quarter: 2025Q2

REPORT INFORMATION
  Report Type: Spontaneous
  Country: US (occurrence: US)
  Receive Date: 20250521
  Receipt Date: 20250521
  Transmission Date: 20250717
  Serious: Yes (Other)
  Sender: AMGEN
  Company Number: US-AMGEN-USASP2025095985

PATIENT
  Age: 73 Year
  Sex: Female

DRUGS (6)
  1. REPATHA [Suspect]
     Active Substance: EVOLOCUMAB
     Indication: Blood cholesterol increased
     Dosage: 140 MILLIGRAM, Q2WK
     Route: 058
  2. ASPIRIN [Concomitant]
     Active Substance: ASPIRIN
     Dates: start: 20250510
  3. LEQVIO [Concomitant]
     Active Substance: INCLISIRAN SODIUM
     Dates: start: 202408
  4. AMLODIPINE [Concomitant]
     Active Substance: AMLODIPINE BESYLATE
     Indication: Blood pressure abnormal
  5. LEVOTHYROXINE [Concomitant]
     Active Substance: LEVOTHYROXINE
     Indication: Thyroid disorder
  6. XANAX [Concomitant]
     Active Substance: ALPRAZOLAM
     Indication: Anxiety
     Dates: start: 2020

REACTIONS (7)
  - Coronary artery occlusion [Unknown]
  - Aortic occlusion [Unknown]
  - Decreased activity [Unknown]
  - Cold sweat [Unknown]
  - Anxiety [Unknown]
  - Therapy interrupted [Unknown]
  - Hypertension [Unknown]

NARRATIVE: CASE EVENT DATE: 20230801
